FAERS Safety Report 10390513 (Version 2)
Quarter: 2014Q3

REPORT INFORMATION
  Report Type: Spontaneous
  Country: US (occurrence: US)
  Receive Date: 20140818
  Receipt Date: 20140818
  Transmission Date: 20150326
  Serious: Yes (Hospitalization)
  Sender: FDA-Public Use
  Company Number: US-009507513-2008-181666-NL

PATIENT
  Sex: Female
  Weight: 101.6 kg

DRUGS (4)
  1. PENICILLIN (UNSPECIFIED) [Concomitant]
     Active Substance: PENICILLIN
  2. CALTRATE [Concomitant]
     Active Substance: CALCIUM CARBONATE
  3. NUVARING [Suspect]
     Active Substance: ETHINYL ESTRADIOL\ETONOGESTREL
     Indication: CONTRACEPTION
     Dosage: UNK
     Route: 067
     Dates: start: 200512, end: 20071115
  4. AMOXIL [Concomitant]
     Active Substance: AMOXICILLIN
     Indication: PRODUCT USED FOR UNKNOWN INDICATION
     Dosage: TAKEN INTERMITTANTLY
     Dates: start: 2007, end: 20080828

REACTIONS (3)
  - Toothache [Unknown]
  - Irritable bowel syndrome [Unknown]
  - Deep vein thrombosis [Unknown]

NARRATIVE: CASE EVENT DATE: 200603
